FAERS Safety Report 4516960-4 (Version None)
Quarter: 2005Q1

REPORT INFORMATION
  Report Type: 
  Country: None (occurrence: None)
  Receive Date: 20041029
  Receipt Date: 20040920
  Transmission Date: 20050727
  Serious: No
  Sender: FDA-Public Use
  Company Number: 2004-120495-NL

PATIENT
  Age: 29 Year
  Sex: Female
  Weight: 47.6 kg

DRUGS (5)
  1. NUVARING [Suspect]
     Indication: CONTRACEPTION
     Dosage: DF DAILY VAGINAL
     Route: 067
     Dates: start: 20030101
  2. NUVARING [Suspect]
     Indication: MENSTRUATION IRREGULAR
     Dosage: DF DAILY VAGINAL
     Route: 067
     Dates: start: 20030101
  3. IBUPROFEN [Concomitant]
  4. VALTREX [Concomitant]
  5. VAGINAL YEAST INFECTION MEDICATION [Concomitant]

REACTIONS (2)
  - DEVICE FAILURE [None]
  - VAGINAL MYCOSIS [None]
